FAERS Safety Report 23887614 (Version 2)
Quarter: 2024Q2

REPORT INFORMATION
  Report Type: Spontaneous
  Country: US (occurrence: US)
  Receive Date: 20240523
  Receipt Date: 20240621
  Transmission Date: 20240715
  Serious: Yes (Hospitalization, Other)
  Sender: FDA-Public Use
  Company Number: US-Accord-425349

PATIENT
  Age: 50 Year
  Sex: Female

DRUGS (52)
  1. FLUOROURACIL [Suspect]
     Active Substance: FLUOROURACIL
     Indication: Oesophageal adenocarcinoma
     Route: 042
     Dates: start: 20231115
  2. OXALIPLATIN [Suspect]
     Active Substance: OXALIPLATIN
     Indication: Oesophageal adenocarcinoma
     Route: 042
     Dates: start: 20231115
  3. LEUCOVORIN [Concomitant]
     Active Substance: LEUCOVORIN\LEUCOVORIN CALCIUM
     Indication: Oesophageal adenocarcinoma
     Route: 042
     Dates: start: 20231115
  4. TISLELIZUMAB [Concomitant]
     Active Substance: TISLELIZUMAB
     Indication: Oesophageal adenocarcinoma
     Route: 042
     Dates: start: 20231115
  5. PEPCID [Concomitant]
     Active Substance: FAMOTIDINE
     Dates: start: 20180528
  6. PROZAC [Concomitant]
     Active Substance: FLUOXETINE HYDROCHLORIDE
     Dates: start: 20220704
  7. FLONASE [Concomitant]
     Active Substance: FLUTICASONE PROPIONATE
     Dates: start: 2005
  8. ATARAX [Concomitant]
     Active Substance: HYDROXYZINE HYDROCHLORIDE
     Dates: start: 20220704
  9. KLONOPIN [Concomitant]
     Active Substance: CLONAZEPAM
     Dates: start: 20231010
  10. MONTELUKAST [Concomitant]
     Active Substance: MONTELUKAST SODIUM
     Dates: start: 2021
  11. PROMETRIUM [Concomitant]
     Active Substance: PROGESTERONE
     Dates: start: 20220704
  12. SEROQUEL [Concomitant]
     Active Substance: QUETIAPINE FUMARATE
     Dates: start: 20231010
  13. CRESTOR [Concomitant]
     Active Substance: ROSUVASTATIN CALCIUM
     Dates: start: 2022
  14. EMLA [Concomitant]
     Active Substance: LIDOCAINE\PRILOCAINE
     Dates: start: 20231016
  15. ZOFRAN [Concomitant]
     Active Substance: ONDANSETRON HYDROCHLORIDE
     Dates: start: 20231016
  16. COMPAZINE [Concomitant]
     Active Substance: PROCHLORPERAZINE MALEATE
     Dates: start: 20231016
  17. ESTRACE [Concomitant]
     Active Substance: ESTRADIOL
     Dates: start: 20220705
  18. TYLENOL [Concomitant]
     Active Substance: ACETAMINOPHEN
     Dates: start: 20221113
  19. CLARITIN [Concomitant]
     Active Substance: LORATADINE
     Dates: start: 20221113
  20. TUMS [Concomitant]
     Active Substance: CALCIUM CARBONATE
  21. MIRALAX [Concomitant]
     Active Substance: POLYETHYLENE GLYCOL 3350
     Dates: start: 202310
  22. MAALOX ANTACID [Concomitant]
     Active Substance: ALUMINUM HYDROXIDE\DIMETHICONE\MAGNESIUM HYDROXIDE
     Dates: start: 20231129
  23. VITAMIN B COMPLEX [Concomitant]
     Active Substance: CYANOCOBALAMIN\DEXPANTHENOL\NIACINAMIDE\PYRIDOXINE HYDROCHLORIDE\RIBOFLAVIN 5^-PHOSPHATE SODIUM\THIA
     Dates: start: 2021
  24. FISH OIL [Concomitant]
     Active Substance: FISH OIL
     Dates: start: 2021
  25. TEA TREE OIL [Concomitant]
     Active Substance: TEA TREE OIL
     Dates: start: 2021
  26. PEGFILGRASTIM [Concomitant]
     Active Substance: PEGFILGRASTIM
     Dates: start: 20240218
  27. BENADRYL [Concomitant]
     Active Substance: DIPHENHYDRAMINE HYDROCHLORIDE
     Dates: start: 20240403, end: 20240403
  28. HYDROCORTISONE [Concomitant]
     Active Substance: HYDROCORTISONE\HYDROCORTISONE ACETATE
     Dates: start: 20240403, end: 20240403
  29. FAMOTIDINE [Concomitant]
     Active Substance: FAMOTIDINE
     Dates: start: 20240403, end: 20240403
  30. ZYRTEC [Concomitant]
     Active Substance: CETIRIZINE HYDROCHLORIDE
     Dates: start: 20240403, end: 20240403
  31. IBUPROFEN [Concomitant]
     Active Substance: IBUPROFEN
     Dates: start: 20240417, end: 20240417
  32. PREDNISONE [Concomitant]
     Active Substance: PREDNISONE
     Dates: start: 20240418, end: 20240418
  33. HYDROXYZINE HYDROCHLORIDE [Concomitant]
     Active Substance: HYDROXYZINE HYDROCHLORIDE
     Dates: start: 20240419, end: 20240419
  34. CETIRIZINE HYDROCHLORIDE [Concomitant]
     Active Substance: CETIRIZINE HYDROCHLORIDE
     Dates: start: 20240419, end: 20240419
  35. FLUOXETINE HYDROCHLORIDE [Concomitant]
     Active Substance: FLUOXETINE HYDROCHLORIDE
     Dates: start: 20240419, end: 20240419
  36. KLONOPIN [Concomitant]
     Active Substance: CLONAZEPAM
     Dates: start: 20240419, end: 20240419
  37. MONTELUKAST [Concomitant]
     Active Substance: MONTELUKAST SODIUM
     Dates: start: 20240419, end: 20240419
  38. PROMETRIUM [Concomitant]
     Active Substance: PROGESTERONE
     Dates: start: 20240419, end: 20240419
  39. SEROQUEL [Concomitant]
     Active Substance: QUETIAPINE FUMARATE
     Dates: start: 20240419, end: 20240419
  40. CRESTOR [Concomitant]
     Active Substance: ROSUVASTATIN CALCIUM
     Dates: start: 20240419, end: 20240419
  41. TYLENOL [Concomitant]
     Active Substance: ACETAMINOPHEN
     Dates: start: 20240419, end: 20240419
  42. CLARITIN [Concomitant]
     Active Substance: LORATADINE
     Dates: start: 20240418, end: 20240418
  43. BENADRYL [Concomitant]
     Active Substance: DIPHENHYDRAMINE HYDROCHLORIDE
     Dates: start: 20240417, end: 20240417
  44. BENADRYL [Concomitant]
     Active Substance: DIPHENHYDRAMINE HYDROCHLORIDE
     Dates: start: 20240418, end: 20240418
  45. BENADRYL [Concomitant]
     Active Substance: DIPHENHYDRAMINE HYDROCHLORIDE
     Dates: start: 20240419, end: 20240419
  46. HYDROCORTISONE [Concomitant]
     Active Substance: HYDROCORTISONE\HYDROCORTISONE ACETATE
     Dates: start: 20240417, end: 20240417
  47. FAMOTIDINE [Concomitant]
     Active Substance: FAMOTIDINE
     Dates: start: 20240418, end: 20240418
  48. ZYRTEC [Concomitant]
     Active Substance: CETIRIZINE HYDROCHLORIDE
     Dates: start: 20240419
  49. IBUPROFEN [Concomitant]
     Active Substance: IBUPROFEN
     Dates: start: 202404
  50. TISLELIZUMAB [Concomitant]
     Active Substance: TISLELIZUMAB
     Indication: Oesophageal adenocarcinoma
     Dosage: C13
     Route: 042
     Dates: start: 20240515
  51. LEUCOVORIN [Concomitant]
     Active Substance: LEUCOVORIN\LEUCOVORIN CALCIUM
     Indication: Oesophageal adenocarcinoma
     Dosage: C13
     Route: 042
     Dates: start: 20240515
  52. FLUOROURACIL [Suspect]
     Active Substance: FLUOROURACIL
     Indication: Oesophageal adenocarcinoma
     Dosage: C13
     Route: 042
     Dates: start: 20240515

REACTIONS (1)
  - Febrile neutropenia [Recovered/Resolved]

NARRATIVE: CASE EVENT DATE: 20240501
